FAERS Safety Report 8533955 (Version 3)
Quarter: 2013Q4

REPORT INFORMATION
  Report Type: Spontaneous
  Country: JP (occurrence: JP)
  Receive Date: 20120427
  Receipt Date: 20131230
  Transmission Date: 20140711
  Serious: Yes (Other)
  Sender: FDA-Public Use
  Company Number: JP-ROCHE-1061940

PATIENT
  Sex: Female
  Weight: 10 kg

DRUGS (4)
  1. ACTEMRA [Suspect]
     Indication: TAKAYASU^S ARTERITIS
     Dosage: INTERVAL FOR ONE WEEK
     Route: 041
     Dates: start: 20110906, end: 20110921
  2. ACTEMRA [Suspect]
     Indication: TAKAYASU^S ARTERITIS
     Route: 041
     Dates: start: 20131114, end: 20131121
  3. ACTEMRA [Suspect]
     Indication: AORTITIS
     Route: 065
  4. PREDNISOLONE [Concomitant]
     Indication: TAKAYASU^S ARTERITIS
     Route: 048

REACTIONS (4)
  - Acute febrile neutrophilic dermatosis [Unknown]
  - Abdominal pain lower [Unknown]
  - Rash [Unknown]
  - Off label use [Unknown]
